FAERS Safety Report 14446586 (Version 1)
Quarter: 2018Q1

REPORT INFORMATION
  Report Type: Spontaneous
  Country: JP (occurrence: JP)
  Receive Date: 20180126
  Receipt Date: 20180126
  Transmission Date: 20180509
  Serious: Yes (Death)
  Sender: FDA-Public Use
  Company Number: JP-MALLINCKRODT-T201705343

PATIENT
  Age: 7 Decade
  Sex: Female

DRUGS (4)
  1. OXINORM (OXYCODONE HYDROCHLORIDE) [Suspect]
     Active Substance: OXYCODONE HYDROCHLORIDE
     Indication: CANCER PAIN
     Dosage: 100 MG  (20 MG, ONE TIME DOSE)
     Route: 048
     Dates: end: 201711
  2. OXINORM (OXYCODONE HYDROCHLORIDE) [Suspect]
     Active Substance: OXYCODONE HYDROCHLORIDE
     Dosage: 40 MG (20 MG, ONE TIME DOSE)
     Route: 048
     Dates: start: 201711, end: 20171228
  3. METHADONE [Suspect]
     Active Substance: METHADONE HYDROCHLORIDE
     Indication: CANCER PAIN
     Dosage: 75 MG
     Route: 048
     Dates: end: 201711
  4. METHADONE [Suspect]
     Active Substance: METHADONE HYDROCHLORIDE
     Dosage: 90 MG
     Route: 048
     Dates: start: 201712, end: 20171228

REACTIONS (2)
  - Gastrointestinal perforation [Fatal]
  - Malaise [Recovered/Resolved]

NARRATIVE: CASE EVENT DATE: 201711
